FAERS Safety Report 20905214 (Version 1)
Quarter: 2022Q2

REPORT INFORMATION
  Report Type: Spontaneous
  Country: US (occurrence: US)
  Receive Date: 20220602
  Receipt Date: 20220602
  Transmission Date: 20220721
  Serious: No
  Sender: FDA-Public Use
  Company Number: US-PFIZER INC-202200781543

PATIENT
  Age: 44 Year
  Sex: Female
  Weight: 77.11 kg

DRUGS (1)
  1. PAXLOVID [Suspect]
     Active Substance: NIRMATRELVIR\RITONAVIR
     Indication: COVID-19 treatment
     Dosage: 3 DF, 2X/DAY(3 PILLS ON THE BLUE SIDE AT NIGHT AND 3 PILLS ON THE YELLOW SIDE IN THE MORNING )

REACTIONS (3)
  - Taste disorder [Unknown]
  - Diarrhoea [Unknown]
  - Pyrexia [Unknown]
